FAERS Safety Report 5441773-9 (Version None)
Quarter: 2007Q3

REPORT INFORMATION
  Report Type: 
  Country: None (occurrence: None)
  Receive Date: 20070830
  Receipt Date: 20070830
  Transmission Date: 20080115
  Serious: Yes (Hospitalization)
  Sender: FDA-Public Use
  Company Number: None

PATIENT
  Age: 66 Year
  Sex: Male

DRUGS (7)
  1. TICLID [Suspect]
     Indication: AGRANULOCYTOSIS
     Dosage: 250 MG BID PO
     Route: 048
     Dates: start: 19070511, end: 19070613
  2. AMLODIPINE [Concomitant]
  3. ASPIRIN [Concomitant]
  4. M.V.I. [Concomitant]
  5. NITROGLYCERIN [Concomitant]
  6. OMEPRAZOLE [Concomitant]
  7. PREDNISONE TAB [Concomitant]

REACTIONS (3)
  - AGRANULOCYTOSIS [None]
  - ARTHROPOD BITE [None]
  - CELLULITIS [None]
